FAERS Safety Report 6340287-1 (Version None)
Quarter: 2009Q3

REPORT INFORMATION
  Report Type: 
  Country: None (occurrence: None)
  Receive Date: 20090902
  Receipt Date: 20090901
  Transmission Date: 20100115
  Serious: Yes (Hospitalization)
  Sender: FDA-Public Use
  Company Number: IDA-00252

PATIENT
  Sex: Female

DRUGS (3)
  1. PROPRANOLOL [Suspect]
     Indication: HAEMANGIOMA
     Dosage: ORAL
     Route: 048
     Dates: start: 20090319
  2. FERROSTRANE (SODIUM FEREDETATE) [Suspect]
     Dates: start: 20090313
  3. L-THYROXINE (LEVOTHYROXINE) [Concomitant]

REACTIONS (2)
  - INGUINAL HERNIA [None]
  - RECTAL HAEMORRHAGE [None]
